FAERS Safety Report 5790850-1 (Version None)
Quarter: 2008Q2

REPORT INFORMATION
  Report Type: 
  Country: None (occurrence: None)
  Receive Date: 20080626
  Receipt Date: 20080616
  Transmission Date: 20081010
  Serious: Yes (Hospitalization, Other)
  Sender: FDA-Public Use
  Company Number: NL-PURDUE-GBR_2008_0003837

PATIENT
  Age: 2 Day

DRUGS (1)
  1. MORPHINE SULFATE [Suspect]
     Indication: PAIN
     Dosage: 5000 MCG/KG, SINGLE
     Route: 042

REACTIONS (7)
  - APNOEA [None]
  - ELECTROENCEPHALOGRAM ABNORMAL [None]
  - HYPOTONIA NEONATAL [None]
  - INCORRECT DOSE ADMINISTERED [None]
  - MIOSIS [None]
  - NEONATAL RESPIRATORY DEPRESSION [None]
  - SEDATION [None]
